FAERS Safety Report 15725387 (Version 1)
Quarter: 2018Q4

REPORT INFORMATION
  Report Type: Spontaneous
  Country: GB (occurrence: GB)
  Receive Date: 20181215
  Receipt Date: 20181215
  Transmission Date: 20190205
  Serious: Yes (Other)
  Sender: FDA-Public Use
  Company Number: GB-TEVA-2018-GB-985959

PATIENT
  Age: 31 Year
  Sex: Female
  Weight: 48.07 kg

DRUGS (1)
  1. OFLOXACIN HYDROCHLORIDE [Suspect]
     Active Substance: OFLOXACIN HYDROCHLORIDE
     Indication: PELVIC INFLAMMATORY DISEASE
     Route: 048
     Dates: start: 20181105, end: 20181106

REACTIONS (4)
  - Claustrophobia [Unknown]
  - Nocturnal fear [Unknown]
  - Panic attack [Recovered/Resolved]
  - Insomnia [Recovered/Resolved]
